FAERS Safety Report 13864483 (Version 1)
Quarter: 2017Q3

REPORT INFORMATION
  Report Type: Spontaneous
  Country: US (occurrence: US)
  Receive Date: 20170812
  Receipt Date: 20170812
  Transmission Date: 20171127
  Serious: Yes (Disabling)
  Sender: FDA-Public Use
  Company Number: None

PATIENT
  Age: 61 Year
  Sex: Male
  Weight: 94.5 kg

DRUGS (4)
  1. PREDNISONE. [Suspect]
     Active Substance: PREDNISONE
     Indication: OROPHARYNGEAL PAIN
     Dates: start: 20160602, end: 20160604
  2. ALFUZOSIN [Concomitant]
     Active Substance: ALFUZOSIN
  3. MULTIVITAMIN [Concomitant]
     Active Substance: VITAMINS
  4. LEVAQUIN [Suspect]
     Active Substance: LEVOFLOXACIN
     Indication: OROPHARYNGEAL PAIN
     Dates: start: 20160602, end: 20160604

REACTIONS (4)
  - Headache [None]
  - Arthralgia [None]
  - Pain in extremity [None]
  - Tendon rupture [None]

NARRATIVE: CASE EVENT DATE: 20160602
